FAERS Safety Report 24601526 (Version 2)
Quarter: 2025Q3

REPORT INFORMATION
  Report Type: Report from Study
  Country: AR (occurrence: AR)
  Receive Date: 20241111
  Receipt Date: 20250810
  Transmission Date: 20251021
  Serious: Yes (Other)
  Sender: ALEXION PHARMACEUTICALS
  Company Number: AR-AstraZeneca-CH-00728331A

PATIENT
  Age: 64 Year
  Sex: Female

DRUGS (9)
  1. ESOMEPRAZOLE [Suspect]
     Active Substance: ESOMEPRAZOLE
     Dosage: UNK UNK, BID
  2. SYMBICORT [Suspect]
     Active Substance: BUDESONIDE\FORMOTEROL FUMARATE DIHYDRATE
     Indication: Asthma
     Dates: start: 2001
  3. Amoxidal [Concomitant]
     Route: 065
  4. BIOTIN [Concomitant]
     Active Substance: BIOTIN
     Route: 065
  5. Daflon [Concomitant]
     Route: 065
  6. FOLIC ACID [Concomitant]
     Active Substance: FOLIC ACID
     Route: 065
  7. METHOTREXATE [Concomitant]
     Active Substance: METHOTREXATE
     Route: 065
  8. TADALAFIL [Concomitant]
     Active Substance: TADALAFIL
     Route: 065
  9. LEVOTHYROXINE [Concomitant]
     Active Substance: LEVOTHYROXINE

REACTIONS (17)
  - Pulmonary hypertension [Not Recovered/Not Resolved]
  - COVID-19 [Unknown]
  - Scleroderma [Not Recovered/Not Resolved]
  - Diabetes mellitus [Not Recovered/Not Resolved]
  - Hiatus hernia [Not Recovered/Not Resolved]
  - Immunodeficiency [Not Recovered/Not Resolved]
  - Glaucoma [Recovered/Resolved]
  - Pyrexia [Not Recovered/Not Resolved]
  - Bronchitis [Not Recovered/Not Resolved]
  - Diverticulum [Unknown]
  - Irritable bowel syndrome [Unknown]
  - Facial paralysis [Unknown]
  - Dry eye [Not Recovered/Not Resolved]
  - Skin ulcer [Unknown]
  - Lymphoedema [Not Recovered/Not Resolved]
  - Telangiectasia [Not Recovered/Not Resolved]
  - Thyroid disorder [Not Recovered/Not Resolved]

NARRATIVE: CASE EVENT DATE: 20010101
